FAERS Safety Report 5132787-7 (Version None)
Quarter: 2006Q4

REPORT INFORMATION
  Report Type: 
  Country: None (occurrence: None)
  Receive Date: 20061023
  Receipt Date: 20061016
  Transmission Date: 20070319
  Serious: Yes (Hospitalization, Disabling)
  Sender: FDA-Public Use
  Company Number: US-MERCK-0610USA10665

PATIENT
  Age: 75 Year
  Sex: Male

DRUGS (4)
  1. ZOCOR [Suspect]
     Indication: HYPERLIPIDAEMIA
     Route: 048
     Dates: start: 20060801, end: 20060801
  2. ZOCOR [Suspect]
     Route: 048
     Dates: start: 19990101, end: 20060801
  3. VERAPAMIL [Concomitant]
     Route: 065
     Dates: start: 19990101
  4. LOPID [Concomitant]
     Route: 065
     Dates: start: 19990101

REACTIONS (3)
  - FALL [None]
  - MYOPATHY [None]
  - PAIN IN EXTREMITY [None]
